FAERS Safety Report 6270638-8 (Version None)
Quarter: 2009Q3

REPORT INFORMATION
  Report Type: 
  Country: None (occurrence: None)
  Receive Date: 20090716
  Receipt Date: 20090707
  Transmission Date: 20100115
  Serious: Yes (Hospitalization)
  Sender: FDA-Public Use
  Company Number: FR-ASTRAZENECA-2009SE04337

PATIENT
  Age: 950 Month
  Sex: Male

DRUGS (1)
  1. OMEPRAZOLE [Suspect]
     Route: 048
     Dates: start: 20080201, end: 20080501

REACTIONS (1)
  - CUTANEOUS LUPUS ERYTHEMATOSUS [None]
